FAERS Safety Report 6922999-1 (Version None)
Quarter: 2010Q3

REPORT INFORMATION
  Report Type: 
  Country: None (occurrence: None)
  Receive Date: 20100813
  Receipt Date: 20100802
  Transmission Date: 20110219
  Serious: Yes (Death)
  Sender: FDA-Public Use
  Company Number: DE-WATSON-2010-10734

PATIENT
  Age: 57 Year
  Sex: Female

DRUGS (3)
  1. FLUOROURACIL [Suspect]
     Indication: BILE DUCT CANCER
     Dosage: EVERY 2 WEEKS
  2. OXALIPLATIN [Suspect]
     Indication: BILE DUCT CANCER
     Dosage: EVERY 2 WEEKS
  3. FOLINIC ACID [Suspect]
     Indication: BILE DUCT CANCER
     Dosage: EVERY 2 WEEKS

REACTIONS (2)
  - ANTIBODY TEST POSITIVE [None]
  - HAEMOLYSIS [None]
